FAERS Safety Report 5584530-5 (Version None)
Quarter: 2008Q1

REPORT INFORMATION
  Report Type: 
  Country: None (occurrence: None)
  Receive Date: 20080108
  Receipt Date: 20071211
  Transmission Date: 20080703
  Serious: Yes (Hospitalization)
  Sender: FDA-Public Use
  Company Number: TR-ELI_LILLY_AND_COMPANY-TR200712004847

PATIENT
  Age: 65 Year
  Sex: Male
  Weight: 50 kg

DRUGS (4)
  1. HUMALOG MIX 75/25 [Suspect]
     Dosage: UNK, UNK
     Route: 058
     Dates: start: 20071001, end: 20071121
  2. VERMIDON [Concomitant]
     Dates: start: 20071204
  3. XANAX [Concomitant]
     Dates: start: 20071204
  4. ANALGESICS [Concomitant]
     Dosage: UNK, UNK
     Dates: end: 20071206

REACTIONS (3)
  - ANOREXIA [None]
  - BLOOD GLUCOSE DECREASED [None]
  - LUNG NEOPLASM MALIGNANT [None]
